FAERS Safety Report 8471944-9 (Version None)
Quarter: 2012Q2

REPORT INFORMATION
  Report Type: 
  Country: None (occurrence: None)
  Receive Date: 20120627
  Receipt Date: 20120621
  Transmission Date: 20120825
  Serious: Yes (Death)
  Sender: FDA-Public Use
  Company Number: IT-JNJFOC-20120611236

PATIENT

DRUGS (1)
  1. CLADRIBINE [Suspect]
     Indication: HAIRY CELL LEUKAEMIA
     Dosage: FOR 7 CONSECUTIVE DAYS; ARM B
     Route: 058

REACTIONS (1)
  - BRONCHOPULMONARY ASPERGILLOSIS [None]
